FAERS Safety Report 7532879-9 (Version None)
Quarter: 2011Q2

REPORT INFORMATION
  Report Type: 
  Country: None (occurrence: None)
  Receive Date: 20110608
  Receipt Date: 20110527
  Transmission Date: 20111010
  Serious: Yes (Other)
  Sender: FDA-Public Use
  Company Number: GB-PFIZER INC-2011116251

PATIENT
  Age: 61 Year
  Sex: Female

DRUGS (9)
  1. METHYLPREDNISOLONE [Concomitant]
     Dosage: 50 MG, UNK
     Dates: start: 20110526, end: 20110526
  2. DOMPERIDONE [Concomitant]
     Dosage: 20 MG, UNK
     Dates: start: 20110526
  3. CHLORPHENIRAMINE MALEATE [Concomitant]
     Dosage: 10 MG, UNK
     Dates: start: 20110526, end: 20110526
  4. ALLOPURINOL [Concomitant]
     Dosage: 300 MG, UNK
     Dates: start: 20110526
  5. ONDANSETRON [Concomitant]
     Dosage: 8 MG, UNK
     Dates: start: 20110526
  6. ACYCLOVIR [Concomitant]
     Dosage: 400 MG, UNK
     Dates: start: 20110526
  7. GEMTUZUMAB OZOGAMICIN [Suspect]
     Indication: ACUTE MYELOID LEUKAEMIA
     Dosage: 3 MG/M2
     Dates: start: 20110526
  8. GEMTUZUMAB OZOGAMICIN [Suspect]
     Indication: MYELODYSPLASTIC SYNDROME
  9. NYSTATIN [Concomitant]
     Dosage: 1 ML, UNK
     Dates: start: 20110526

REACTIONS (1)
  - SINUS BRADYCARDIA [None]
